FAERS Safety Report 13233131 (Version 2)
Quarter: 2017Q1

REPORT INFORMATION
  Report Type: Report from Study
  Country: US (occurrence: US)
  Receive Date: 20170215
  Receipt Date: 20170227
  Transmission Date: 20170428
  Serious: Yes (Death)
  Sender: FDA-Public Use
  Company Number: US-BEH-2017078017

PATIENT
  Age: 69 Year
  Sex: Male
  Weight: 71.2 kg

DRUGS (1)
  1. ZEMAIRA [Suspect]
     Active Substance: .ALPHA.1-PROTEINASE INHIBITOR HUMAN
     Indication: ALPHA-1 ANTI-TRYPSIN DEFICIENCY
     Dosage: 4 VIALS WEEKLY
     Route: 042
     Dates: start: 20150922

REACTIONS (1)
  - Chronic obstructive pulmonary disease [Fatal]
